FAERS Safety Report 9308460 (Version 2)
Quarter: 2013Q2

REPORT INFORMATION
  Report Type: Spontaneous
  Country: BR (occurrence: BR)
  Receive Date: 20130524
  Receipt Date: 20130604
  Transmission Date: 20140414
  Serious: Yes (Hospitalization)
  Sender: FDA-Public Use
  Company Number: BR-BRISTOL-MYERS SQUIBB COMPANY-18915918

PATIENT
  Age: 50 Year
  Sex: Female

DRUGS (10)
  1. YERVOY [Suspect]
     Indication: METASTATIC MALIGNANT MELANOMA
     Dosage: AFTER 3RD DOSE EVENT OCCURED.?C1 ON 20MAR13?C2 ON 11APR13?C3 ON 02MAY13
     Route: 042
  2. MORPHINE [Concomitant]
  3. SYNTHROID [Concomitant]
     Dosage: IN MORNING
     Route: 048
  4. CITALOPRAM [Concomitant]
  5. OMEPRAZOLE [Concomitant]
  6. PREDNISONE [Concomitant]
  7. CLEXANE [Concomitant]
  8. CLAVULIN [Concomitant]
     Indication: URINARY TRACT INFECTION
  9. CLEXANE [Concomitant]
  10. BACTRIM [Concomitant]
     Dosage: ON MONDAY, WEDNESDAY AND FRIDAYS.

REACTIONS (1)
  - Budd-Chiari syndrome [Not Recovered/Not Resolved]
